FAERS Safety Report 8854131 (Version 1)
Quarter: 2012Q4

REPORT INFORMATION
  Report Type: 
  Country: US (occurrence: None)
  Receive Date: 20121019
  Receipt Date: 20121019
  Transmission Date: 20130627
  Serious: Yes (Hospitalization)
  Sender: FDA-Public Use
  Company Number: None

PATIENT
  Sex: Male

DRUGS (2)
  1. CYTARABINE [Suspect]
     Dosage: 2016 MG
     Dates: end: 20120920
  2. DAUNORUBICIN [Suspect]
     Dates: end: 20120916

REACTIONS (3)
  - Sepsis [None]
  - Immune reconstitution inflammatory syndrome [None]
  - Clostridium difficile colitis [None]
